FAERS Safety Report 15841551 (Version 1)
Quarter: 2018Q4

REPORT INFORMATION
  Report Type: Spontaneous
  Country: US (occurrence: US)
  Receive Date: 20181221
  Receipt Date: 20181221
  Transmission Date: 20190205
  Serious: No
  Sender: FDA-Public Use
  Company Number: None

PATIENT
  Sex: Female

DRUGS (2)
  1. ENTECAVIR 0.5MG TEVA PHARMACEUTICALS USA [Suspect]
     Active Substance: ENTECAVIR
     Indication: CHRONIC HEPATITIS B
     Route: 048
     Dates: start: 20170613
  2. ENTECAVIR 0.5MG TEVA PHARMACEUTICALS USA [Suspect]
     Active Substance: ENTECAVIR
     Indication: CHRONIC HEPATITIS
     Route: 048
     Dates: start: 20170613

REACTIONS (2)
  - Anxiety [None]
  - Hypoaesthesia [None]
